FAERS Safety Report 17322815 (Version 1)
Quarter: 2020Q1

REPORT INFORMATION
  Report Type: Spontaneous
  Country: PT (occurrence: PT)
  Receive Date: 20200127
  Receipt Date: 20200127
  Transmission Date: 20200409
  Serious: Yes (Life-Threatening, Hospitalization, Other)
  Sender: FDA-Public Use
  Company Number: PT-009507513-2001PRT008426

PATIENT
  Age: 71 Year
  Sex: Female

DRUGS (1)
  1. KEYTRUDA [Suspect]
     Active Substance: PEMBROLIZUMAB
     Indication: LUNG NEOPLASM MALIGNANT
     Dosage: 3 CYCLICAL

REACTIONS (4)
  - Shock [Recovering/Resolving]
  - Diabetic ketoacidosis [Recovering/Resolving]
  - Diabetes mellitus [Unknown]
  - Autoimmune thyroiditis [Recovering/Resolving]
